FAERS Safety Report 17454570 (Version 1)
Quarter: 2020Q1

REPORT INFORMATION
  Report Type: Spontaneous
  Country: US (occurrence: US)
  Receive Date: 20200225
  Receipt Date: 20200225
  Transmission Date: 20200409
  Serious: Yes (Other)
  Sender: FDA-Public Use
  Company Number: US-009507513-2002USA007400

PATIENT
  Sex: Male

DRUGS (2)
  1. CEFTAROLINE FOSAMIL ACETATE [Suspect]
     Active Substance: CEFTAROLINE FOSAMIL
     Dosage: UNK
  2. ZERBAXA [Suspect]
     Active Substance: CEFTOLOZANE SULFATE\TAZOBACTAM SODIUM
     Dosage: UNK

REACTIONS (2)
  - Neurotoxicity [Unknown]
  - Renal impairment [Unknown]
